FAERS Safety Report 9158594 (Version 1)
Quarter: 2013Q1

REPORT INFORMATION
  Report Type: Spontaneous
  Country: US (occurrence: US)
  Receive Date: 20130312
  Receipt Date: 20130312
  Transmission Date: 20140127
  Serious: Yes (Other)
  Sender: FDA-Public Use
  Company Number: US-TEVA-390088USA

PATIENT
  Sex: 0

DRUGS (1)
  1. QUETIAPINE FUMARATE [Suspect]

REACTIONS (5)
  - Paralysis [Unknown]
  - Nightmare [Unknown]
  - Movement disorder [Unknown]
  - Insomnia [Unknown]
  - Hallucination [Unknown]
